FAERS Safety Report 8019810-7 (Version None)
Quarter: 2012Q1

REPORT INFORMATION
  Report Type: 
  Country: None (occurrence: None)
  Receive Date: 20120103
  Receipt Date: 20111228
  Transmission Date: 20120608
  Serious: Yes (Other)
  Sender: FDA-Public Use
  Company Number: US-PFIZER INC-2011185847

PATIENT
  Sex: Female

DRUGS (7)
  1. NORTRIPTYLINE HCL [Suspect]
     Indication: IRRITABLE BOWEL SYNDROME
     Dosage: TOOK FOR ONE NIGHT
  2. ZINC [Concomitant]
  3. VICODIN [Concomitant]
  4. NORTRIPTYLINE HCL [Suspect]
     Indication: SLEEP DISORDER
  5. GABAPENTIN [Suspect]
     Indication: RAPID EYE MOVEMENTS SLEEP ABNORMAL
     Dosage: 300 MG, 1X/DAY AT BEDTIME
     Dates: end: 20110101
  6. FLEXERIL [Concomitant]
  7. NEXIUM [Suspect]

REACTIONS (6)
  - URTICARIA [None]
  - SLEEP APNOEA SYNDROME [None]
  - NIGHTMARE [None]
  - DYSPNOEA [None]
  - FIBROMYALGIA [None]
  - PREMATURE AGEING [None]
